FAERS Safety Report 22400198 (Version 1)
Quarter: 2023Q2

REPORT INFORMATION
  Report Type: Spontaneous
  Country: US (occurrence: None)
  Receive Date: 20230601
  Receipt Date: 20230601
  Transmission Date: 20230722
  Serious: Yes (Congenital Anomaly)
  Sender: FDA-Public Use
  Company Number: None

PATIENT
  Age: 48 Year
  Sex: Female
  Weight: 87.75 kg

DRUGS (1)
  1. ZOLOFT [Suspect]
     Active Substance: SERTRALINE HYDROCHLORIDE
     Indication: Depression
     Dosage: FREQUENCY : DAILY;?
     Route: 048
     Dates: start: 20040601, end: 20180301

REACTIONS (5)
  - Maternal exposure during pregnancy [None]
  - Foetal exposure during pregnancy [None]
  - Attention deficit hyperactivity disorder [None]
  - Autism spectrum disorder [None]
  - Maternal drugs affecting foetus [None]

NARRATIVE: CASE EVENT DATE: 20040730
